FAERS Safety Report 7531954-2 (Version None)
Quarter: 2011Q2

REPORT INFORMATION
  Report Type: 
  Country: None (occurrence: None)
  Receive Date: 20110608
  Receipt Date: 20110530
  Transmission Date: 20111010
  Serious: Yes (Hospitalization, Disabling)
  Sender: FDA-Public Use
  Company Number: JP-ASTRAZENECA-2011SE12029

PATIENT
  Age: 57 Year
  Sex: Female

DRUGS (6)
  1. CRESTOR [Suspect]
     Indication: HYPERLIPIDAEMIA
     Route: 048
     Dates: start: 20070207, end: 20110302
  2. PANCREAZE [Concomitant]
     Indication: GASTRITIS
     Route: 048
     Dates: start: 20080109, end: 20110302
  3. RUEFRIEN [Concomitant]
     Indication: GASTRITIS
     Route: 048
     Dates: start: 20080109, end: 20110302
  4. MYONAL [Concomitant]
     Indication: CERVICOBRACHIAL SYNDROME
     Dosage: THREE TIMES DAILY
     Route: 048
     Dates: start: 20080109, end: 20110302
  5. NORVASC [Concomitant]
     Indication: HYPERTENSION
     Route: 048
     Dates: start: 20080109, end: 20110302
  6. CANDESARTAN CILEXETIL [Concomitant]
     Indication: HYPERTENSION
     Route: 048
     Dates: start: 20080109, end: 20110302

REACTIONS (2)
  - SUDDEN HEARING LOSS [None]
  - HEPATITIS FULMINANT [None]
